FAERS Safety Report 5240902-X (Version None)
Quarter: 2007Q1

REPORT INFORMATION
  Report Type: 
  Country: None (occurrence: None)
  Receive Date: 20061208
  Receipt Date: 20050803
  Transmission Date: 20070707
  Serious: Yes (Other)
  Sender: FDA-Public Use
  Company Number: 2005UW11901

PATIENT
  Age: 57 Year
  Sex: Male

DRUGS (1)
  1. CRESTOR [Suspect]
     Dates: start: 20050705, end: 20050701

REACTIONS (4)
  - BLOOD GLUCOSE INCREASED [None]
  - INSOMNIA [None]
  - POLLAKIURIA [None]
  - THIRST [None]
